FAERS Safety Report 4892777-6 (Version None)
Quarter: 2005Q4

REPORT INFORMATION
  Report Type: 
  Country: None (occurrence: None)
  Receive Date: 20051220
  Receipt Date: 20051108
  Transmission Date: 20060501
  Serious: Yes (Other)
  Sender: FDA-Public Use
  Company Number: 424426

PATIENT
  Age: 64 Year
  Sex: Female

DRUGS (1)
  1. BONIVA [Suspect]
     Indication: BONE DENSITOMETRY
     Dosage: ORAL
     Route: 048
     Dates: start: 20050813, end: 20051013

REACTIONS (2)
  - ARTHRALGIA [None]
  - DYSPEPSIA [None]
